FAERS Safety Report 5589851-8 (Version None)
Quarter: 2008Q1

REPORT INFORMATION
  Report Type: 
  Country: None (occurrence: None)
  Receive Date: 20080114
  Receipt Date: 20071210
  Transmission Date: 20080703
  Serious: Yes (Other)
  Sender: FDA-Public Use
  Company Number: JP-MERCK-0712USA06019

PATIENT
  Age: 13 Year
  Sex: Male

DRUGS (6)
  1. FOSAMAX [Suspect]
     Route: 048
  2. CALCIUM LACTATE [Concomitant]
     Route: 048
  3. ACECOL [Concomitant]
     Route: 048
  4. ALLOPURINOL [Concomitant]
     Route: 048
  5. ALFACALCIDOL [Concomitant]
     Route: 048
  6. ELCATONIN [Concomitant]
     Route: 030

REACTIONS (4)
  - HYPERPARATHYROIDISM SECONDARY [None]
  - HYPOCALCAEMIA [None]
  - OVERDOSE [None]
  - RENAL FAILURE [None]
